FAERS Safety Report 9729437 (Version 1)
Quarter: 2013Q4

REPORT INFORMATION
  Report Type: Spontaneous
  Country: US (occurrence: US)
  Receive Date: 20131204
  Receipt Date: 20131204
  Transmission Date: 20140711
  Serious: No
  Sender: FDA-Public Use
  Company Number: US-GILEAD-2009-0021323

PATIENT
  Sex: Female

DRUGS (17)
  1. LETAIRIS [Suspect]
     Indication: PULMONARY ARTERIAL HYPERTENSION
     Route: 048
     Dates: start: 20090210
  2. FUROSEMIDE [Concomitant]
  3. PROCARDIA XL [Concomitant]
  4. ASPIRIN [Concomitant]
  5. VENTOLIN [Concomitant]
  6. PLAVIX [Concomitant]
  7. PREDNISONE [Concomitant]
  8. CEFDINIR [Concomitant]
  9. KLOR-CON [Concomitant]
  10. METHOTREXATE [Concomitant]
  11. PRILOSEC [Concomitant]
  12. TYLENOL [Concomitant]
  13. YAZ 28 [Concomitant]
  14. PERCOCET 5/325 [Concomitant]
  15. IBUPROFEN [Concomitant]
  16. FOLIC ACID [Concomitant]
  17. NOXIN [Concomitant]

REACTIONS (2)
  - Dyspnoea [Unknown]
  - Headache [Unknown]
